FAERS Safety Report 5341118-9 (Version None)
Quarter: 2007Q2

REPORT INFORMATION
  Report Type: 
  Country: None (occurrence: None)
  Receive Date: 20070530
  Receipt Date: 20070510
  Transmission Date: 20071010
  Serious: Yes (Death, Hospitalization)
  Sender: FDA-Public Use
  Company Number: 2005BI006722

PATIENT
  Age: 35 Year
  Sex: Female

DRUGS (1)
  1. NATALIZUMAB [Suspect]
     Indication: MULTIPLE SCLEROSIS
     Dosage: 300 MG; QM; IV
     Route: 042
     Dates: start: 20050112, end: 20050201

REACTIONS (11)
  - CONDITION AGGRAVATED [None]
  - DYSURIA [None]
  - GAIT DISTURBANCE [None]
  - HYPOAESTHESIA [None]
  - MULTIPLE SCLEROSIS [None]
  - NEUROMYELITIS OPTICA [None]
  - PYREXIA [None]
  - QUADRIPLEGIA [None]
  - RASH [None]
  - URINARY TRACT INFECTION [None]
  - URTICARIA [None]
